FAERS Safety Report 8244947-7 (Version None)
Quarter: 2012Q1

REPORT INFORMATION
  Report Type: 
  Country: None (occurrence: None)
  Receive Date: 20120329
  Receipt Date: 20110930
  Transmission Date: 20120608
  Serious: No
  Sender: FDA-Public Use
  Company Number: US-MYLANLABS-2011S1020776

PATIENT
  Age: 66 Year
  Sex: Female

DRUGS (8)
  1. MONOPRIL [Concomitant]
  2. SULAR [Concomitant]
  3. SOMA [Concomitant]
  4. TOPROL-XL [Concomitant]
  5. NITROGLYCERIN [Concomitant]
  6. FENTANYL-100 [Suspect]
     Indication: PAIN
     Dosage: CHANGED Q48H
     Route: 062
     Dates: end: 20110820
  7. PHENERGAN HCL [Concomitant]
  8. LAMICTAL [Concomitant]

REACTIONS (1)
  - FALSE NEGATIVE INVESTIGATION RESULT [None]
